FAERS Safety Report 20838593 (Version 4)
Quarter: 2022Q3

REPORT INFORMATION
  Report Type: Spontaneous
  Country: US (occurrence: US)
  Receive Date: 20220517
  Receipt Date: 20220726
  Transmission Date: 20221026
  Serious: No
  Sender: FDA-Public Use
  Company Number: US-AIMMUNE THERAPEUTICS, INC.-2022AIMT00379

PATIENT

DRUGS (8)
  1. PALFORZIA [Suspect]
     Active Substance: PEANUT
     Indication: Food allergy
     Dosage: 120 MG, 1X/DAY
     Route: 048
     Dates: start: 20220426, end: 20220501
  2. PALFORZIA [Suspect]
     Active Substance: PEANUT
     Dosage: 60 MG, 1X/DAY, DOSE DECRESED
     Route: 048
     Dates: start: 20220502, end: 20220504
  3. PALFORZIA [Suspect]
     Active Substance: PEANUT
     Dosage: 60 MG, ONCE
     Route: 048
     Dates: start: 20220506, end: 20220506
  4. PALFORZIA [Suspect]
     Active Substance: PEANUT
     Dosage: 80 MG, 1X/DAY, DOSE INCREASED
     Route: 048
     Dates: start: 20220507
  5. PALFORZIA [Suspect]
     Active Substance: PEANUT
     Dosage: 120 MG, 1X/DAY, DOSE INCREASED
     Route: 048
  6. LORATADINE [Concomitant]
     Active Substance: LORATADINE
     Indication: Seasonal allergy
  7. ZYRTEC [Concomitant]
     Active Substance: CETIRIZINE HYDROCHLORIDE
     Indication: Seasonal allergy
  8. MOMETASONE FUROATE [Concomitant]
     Active Substance: MOMETASONE FUROATE
     Indication: Seasonal allergy

REACTIONS (4)
  - Seasonal allergy [Unknown]
  - Nasal congestion [Unknown]
  - Sneezing [Unknown]
  - Illness [Recovered/Resolved]

NARRATIVE: CASE EVENT DATE: 20220707
